FAERS Safety Report 17352310 (Version 1)
Quarter: 2020Q1

REPORT INFORMATION
  Report Type: Spontaneous
  Country: IT (occurrence: IT)
  Receive Date: 20200130
  Receipt Date: 20200130
  Transmission Date: 20200409
  Serious: Yes (Hospitalization)
  Sender: FDA-Public Use
  Company Number: IT-TEVA-2020-IT-1177462

PATIENT
  Age: 86 Year
  Sex: Female

DRUGS (2)
  1. AMOXICILLIN. [Suspect]
     Active Substance: AMOXICILLIN
     Indication: LOCALISED INFECTION
     Dosage: 2 DOSAGE FORMS
     Route: 048
     Dates: start: 20200101, end: 20200106
  2. ETORICOXIB. [Concomitant]
     Active Substance: ETORICOXIB

REACTIONS (4)
  - Pruritus [Unknown]
  - Rash [Unknown]
  - Erythema [Unknown]
  - Rash macular [Unknown]

NARRATIVE: CASE EVENT DATE: 20200107
